FAERS Safety Report 23385707 (Version 1)
Quarter: 2024Q1

REPORT INFORMATION
  Report Type: Spontaneous
  Country: US (occurrence: US)
  Receive Date: 20240110
  Receipt Date: 20240110
  Transmission Date: 20240410
  Serious: Yes (Other)
  Sender: FDA-Public Use
  Company Number: US-NOVOPROD-1159951

PATIENT
  Age: 59 Year
  Sex: Female

DRUGS (1)
  1. WEGOVY [Suspect]
     Active Substance: SEMAGLUTIDE
     Indication: Weight decreased
     Dosage: 2.4 MG, QW
     Route: 058
     Dates: start: 202307

REACTIONS (3)
  - Polypectomy [Recovered/Resolved]
  - Hysterectomy [Recovered/Resolved]
  - Ear tube insertion [Recovered/Resolved]

NARRATIVE: CASE EVENT DATE: 20231001
